FAERS Safety Report 9156985 (Version 1)
Quarter: 2013Q1

REPORT INFORMATION
  Report Type: Spontaneous
  Country: US (occurrence: US)
  Receive Date: 20130312
  Receipt Date: 20130312
  Transmission Date: 20140127
  Serious: Yes (Other)
  Sender: FDA-Public Use
  Company Number: US-BAYER-2013-028424

PATIENT
  Age: 46 Year
  Sex: Female
  Weight: 62.13 kg

DRUGS (22)
  1. YAZ [Suspect]
     Dosage: UNK
  2. YASMIN [Suspect]
     Dosage: UNK
  3. ZOLPIDEM [Concomitant]
     Dosage: 10 MG, UNK
     Route: 048
     Dates: start: 20100115
  4. AZITHROMYCIN [Concomitant]
     Dosage: 250 MG, UNK
     Route: 048
     Dates: start: 20100122
  5. METHYLPREDNISOLONE [Concomitant]
     Dosage: 4 MG, UNK
     Route: 048
     Dates: start: 20100122
  6. PROAIR HFA [Concomitant]
     Dosage: UNK
     Dates: start: 20100122
  7. HYDROCHLOROTHIAZIDE [Concomitant]
     Dosage: 25 MG, UNK
     Route: 048
     Dates: start: 20100318
  8. VITAMIN E [Concomitant]
     Dosage: 400 IU, UNK
     Route: 048
     Dates: start: 20100318
  9. ZYRTEC [Concomitant]
     Dosage: UNK
     Route: 048
     Dates: start: 20100318
  10. PERCOCET [Concomitant]
     Dosage: 5 MG-325 MG
     Route: 048
     Dates: start: 20100318
  11. KEFLEX [Concomitant]
     Dosage: 250 MG, UNK
     Route: 048
     Dates: start: 20100318
  12. FENTANYL [Concomitant]
     Dosage: UNK
     Route: 042
     Dates: start: 20100318
  13. PROPOFOL [Concomitant]
     Dosage: UNK
     Route: 042
     Dates: start: 20100318
  14. ZOFRAN [Concomitant]
     Dosage: UNK
     Route: 042
     Dates: start: 20100318
  15. DILAUDID [Concomitant]
     Dosage: UNK
     Dates: start: 20100318
  16. LORTAB [Concomitant]
     Dosage: UNK
     Dates: start: 20100318
  17. CEFAZOLIN [Concomitant]
     Dosage: 1 G, UNK
     Route: 042
     Dates: start: 20100318
  18. KETOROLAC [Concomitant]
     Dosage: 15 MG, UNK
     Route: 042
     Dates: start: 20100318
  19. CLARITIN [Concomitant]
     Dosage: 10 MG, UNK
     Dates: start: 20100318
  20. MORPHINE [Concomitant]
     Dosage: UNK
     Route: 042
     Dates: start: 20100318
  21. UNCODEABLE ^UNCLASSIFIABLE^ [Concomitant]
     Dosage: UNK
     Dates: start: 20100318
  22. OXYCODONE/APAP [Concomitant]
     Dosage: UNK
     Route: 048
     Dates: start: 20100318

REACTIONS (1)
  - Deep vein thrombosis [Recovered/Resolved]
